FAERS Safety Report 7825498 (Version 4)
Quarter: 2013Q4

REPORT INFORMATION
  Report Type: Report from Study
  Country: FR (occurrence: FR)
  Receive Date: 20110224
  Receipt Date: 20131029
  Transmission Date: 20140711
  Serious: Yes (Other)
  Sender: FDA-Public Use
  Company Number: FR-PFIZER INC-2011035038

PATIENT
  Sex: Female

DRUGS (13)
  1. GENOTONORM [Suspect]
     Dosage: 0.3 MG, 1X/DAY
     Route: 050
     Dates: start: 20040914
  2. ANDROTARDYL [Concomitant]
     Indication: BLOOD LUTEINISING HORMONE DECREASED
     Dosage: 250 MG, MONTHLY
     Route: 050
     Dates: start: 20050712
  3. ANDROTARDYL [Concomitant]
     Indication: BLOOD FOLLICLE STIMULATING HORMONE DECREASED
     Dosage: 1 DF, EVERY 3 WEEKS
     Route: 050
     Dates: start: 20060926
  4. ANDROTARDYL [Concomitant]
     Indication: HYPOGONADISM
     Dosage: 125 MG, CYCLIC, EVERY 2 WEEKS
     Route: 050
     Dates: start: 20070418
  5. ANDROTARDYL [Concomitant]
     Dosage: 75 MG, CYCLIC, EVERY 2 WEEKS
     Route: 050
     Dates: start: 20080626, end: 20090608
  6. ANDROTARDYL [Concomitant]
     Dosage: 50 MG, CYCLIC, EVERY 2 WEEKS
     Route: 050
     Dates: start: 20090609
  7. PANTESTON [Concomitant]
     Indication: BLOOD LUTEINISING HORMONE DECREASED
     Dosage: 40 MG, 1X/DAY
     Route: 050
     Dates: start: 20050125
  8. PANTESTON [Concomitant]
     Indication: BLOOD FOLLICLE STIMULATING HORMONE DECREASED
     Dosage: UNK
     Route: 050
     Dates: start: 20050712
  9. PANTESTON [Concomitant]
     Indication: HYPOGONADISM
  10. PANTESTON [Concomitant]
     Indication: TESTICULAR DISORDER
  11. HYDROCORTISONE [Concomitant]
     Indication: ADRENOCORTICOTROPIC HORMONE DEFICIENCY
     Dosage: 15 MG, 1X/DAY
     Route: 050
     Dates: start: 20060926
  12. LEVOTHYROX [Concomitant]
     Indication: BLOOD THYROID STIMULATING HORMONE DECREASED
     Dosage: 100 UG, 1X/DAY
     Route: 050
     Dates: start: 20060926
  13. LEVOTHYROX [Concomitant]
     Indication: PRIMARY HYPOTHYROIDISM

REACTIONS (2)
  - Exposure via partner [Unknown]
  - Abortion spontaneous [Unknown]
